FAERS Safety Report 21968061 (Version 1)
Quarter: 2023Q1

REPORT INFORMATION
  Report Type: Spontaneous
  Country: US (occurrence: None)
  Receive Date: 20230207
  Receipt Date: 20230207
  Transmission Date: 20230418
  Serious: No
  Sender: FDA-Public Use
  Company Number: None

PATIENT
  Age: 89 Year
  Sex: Male
  Weight: 80.1 kg

DRUGS (1)
  1. MOLNUPIRAVIR [Suspect]
     Active Substance: MOLNUPIRAVIR
     Indication: COVID-19
     Dosage: 80 MG TWICE A DAY ORAL
     Route: 048
     Dates: start: 20230202, end: 20230203

REACTIONS (2)
  - Wrong technique in product usage process [None]
  - Product use complaint [None]

NARRATIVE: CASE EVENT DATE: 20230203
